FAERS Safety Report 8030747 (Version 13)
Quarter: 2012Q4

REPORT INFORMATION
  Report Type: 
  Country: US (occurrence: US)
  Receive Date: 20110712
  Receipt Date: 20121228
  Transmission Date: 20130627
  Serious: Yes (Hospitalization, Congenital Anomaly, Other)
  Sender: FDA-Public Use
  Company Number: US-PFIZER INC-2011151237

PATIENT
  Age: 7 Month
  Sex: Female
  Weight: 3 kg

DRUGS (15)
  1. ZOLOFT [Suspect]
     Dosage: 100 mg, UNK
     Route: 064
     Dates: start: 200004
  2. ZOLOFT [Suspect]
     Dosage: 100 mg daily
     Route: 064
     Dates: start: 20000602
  3. ZOLOFT [Suspect]
     Dosage: 50 mg, UNK
     Route: 064
     Dates: end: 20060216
  4. PREDNISONE [Concomitant]
     Indication: STAPHYLOCOCCAL INFECTION
     Dosage: tapering dose
     Route: 064
     Dates: start: 20050727
  5. PREDNISONE [Concomitant]
     Indication: ERYTHEMA NODOSUM
     Dosage: 10 mg, four times weekly
     Route: 064
     Dates: start: 20050802
  6. LEVAQUIN [Concomitant]
     Indication: STAPHYLOCOCCAL INFECTION
     Dosage: 500 mg, daily
     Route: 064
     Dates: start: 20050727
  7. LEVAQUIN [Concomitant]
     Indication: ERYTHEMA NODOSUM
  8. TYLENOL [Concomitant]
     Indication: STAPHYLOCOCCAL INFECTION
     Dosage: UNK
     Route: 064
     Dates: start: 20050727
  9. TYLENOL [Concomitant]
     Indication: ERYTHEMA NODOSUM
  10. LORTAB [Concomitant]
     Indication: STAPHYLOCOCCAL INFECTION
     Dosage: UNK
     Route: 064
     Dates: start: 20050727
  11. LORTAB [Concomitant]
     Indication: ERYTHEMA NODOSUM
  12. BIAXIN [Concomitant]
     Dosage: UNK
     Route: 064
  13. NITROFURANTOIN [Concomitant]
     Dosage: UNK
     Route: 064
  14. HYDROCODONE/APAP [Concomitant]
     Dosage: UNK
     Route: 064
  15. PRENATAL VITAMINS [Concomitant]
     Dosage: UNK
     Route: 064

REACTIONS (9)
  - Foetal exposure during pregnancy [Unknown]
  - Craniosynostosis [Unknown]
  - Otitis media [Unknown]
  - Cephalhaematoma [Unknown]
  - Urinary tract infection [Unknown]
  - Congenital anomaly [Unknown]
  - Plagiocephaly [Unknown]
  - Subgaleal haematoma [Unknown]
  - Conjunctivitis [Unknown]
